FAERS Safety Report 8833211 (Version 1)
Quarter: 2012Q4

REPORT INFORMATION
  Report Type: 
  Country: US (occurrence: US)
  Receive Date: 20121010
  Receipt Date: 20121010
  Transmission Date: 20130627
  Serious: Yes (Other)
  Sender: FDA-Public Use
  Company Number: US-AMGEN-USASP2012063990

PATIENT
  Age: 65 Year
  Sex: Female

DRUGS (15)
  1. SENSIPAR [Suspect]
     Indication: HYPERPARATHYROIDISM SECONDARY
     Dosage: 90 mg, qwk
  2. SENSIPAR [Suspect]
     Dosage: 90 mg, qd
  3. TACROLIMUS [Concomitant]
     Dosage: 2 mg, q12h
  4. PREDNISONE [Concomitant]
     Dosage: 7.5 mg, qd
  5. SIMVASTATIN [Concomitant]
     Dosage: 10 mg, qd
  6. GABAPENTIN [Concomitant]
     Dosage: 200 mg, qd
  7. ALLOPURINOL [Concomitant]
     Dosage: 200 mg, qd
  8. DIOVAN [Concomitant]
     Dosage: 160 mg, UNK
  9. AMLODIPINE [Concomitant]
     Dosage: 10 mg, 4 times/wk
  10. AMLODIPINE [Concomitant]
     Dosage: 5 mg, 3 times/wk
  11. COLCRYS [Concomitant]
     Dosage: 0.6 mg, 3 times/wk
  12. OMEPRAZOLE [Concomitant]
     Dosage: UNK
  13. ASPIRIN [Concomitant]
     Dosage: UNK
  14. MAGNESIUM [Concomitant]
     Dosage: UNK
  15. FISH OIL [Concomitant]
     Dosage: UNK

REACTIONS (4)
  - Renal transplant [Unknown]
  - Blood parathyroid hormone increased [Unknown]
  - Blood calcium increased [Unknown]
  - Expired drug administered [Unknown]
